FAERS Safety Report 6843467-1 (Version None)
Quarter: 2010Q3

REPORT INFORMATION
  Report Type: 
  Country: None (occurrence: None)
  Receive Date: 20100712
  Receipt Date: 20100705
  Transmission Date: 20110219
  Serious: Yes (Death)
  Sender: FDA-Public Use
  Company Number: 2010SP037462

PATIENT
  Age: 36 Year
  Sex: Female

DRUGS (1)
  1. TEMOZOLOMIDE [Suspect]
     Indication: ASTROCYTOMA
     Dates: start: 20100601, end: 20100701

REACTIONS (1)
  - HEPATITIS FULMINANT [None]
